FAERS Safety Report 4957078-6 (Version None)
Quarter: 2006Q1

REPORT INFORMATION
  Report Type: 
  Country: None (occurrence: None)
  Receive Date: 20060323
  Receipt Date: 20060316
  Transmission Date: 20060701
  Serious: Yes (Hospitalization)
  Sender: FDA-Public Use
  Company Number: 200611255BWH

PATIENT
  Age: 73 Year
  Sex: Female
  Weight: 53.5244 kg

DRUGS (5)
  1. NEXAVAR [Suspect]
     Indication: METASTASES TO LYMPH NODES
     Dosage: 400 MG, BID, ORAL
     Route: 048
     Dates: start: 20060202, end: 20060301
  2. NEXAVAR [Suspect]
     Indication: METASTATIC RENAL CELL CARCINOMA
     Dosage: 400 MG, BID, ORAL
     Route: 048
     Dates: start: 20060202, end: 20060301
  3. SANDOSTATIN [Concomitant]
  4. ACTONEL [Concomitant]
  5. OSCAL [Concomitant]

REACTIONS (11)
  - BLOOD GLUCOSE INCREASED [None]
  - BLOOD PRESSURE INCREASED [None]
  - DEHYDRATION [None]
  - DIARRHOEA [None]
  - EPISTAXIS [None]
  - ONYCHALGIA [None]
  - ORAL PAIN [None]
  - PAIN IN EXTREMITY [None]
  - RASH [None]
  - SKIN EXFOLIATION [None]
  - WEIGHT DECREASED [None]
